FAERS Safety Report 8587800-1 (Version None)
Quarter: 2012Q3

REPORT INFORMATION
  Report Type: 
  Country: None (occurrence: None)
  Receive Date: 20120813
  Receipt Date: 20120801
  Transmission Date: 20120928
  Serious: Yes (Hospitalization)
  Sender: FDA-Public Use
  Company Number: US-BIOGENIDEC-2012BI029627

PATIENT
  Age: 46 Year
  Sex: Female
  Weight: 81 kg

DRUGS (11)
  1. AMPYRA [Concomitant]
  2. XYREM [Concomitant]
  3. LEXAPRO [Concomitant]
  4. WELLBUTRIN [Concomitant]
  5. NEURONTIN [Concomitant]
  6. TYSABRI [Suspect]
     Route: 042
     Dates: start: 20100316
  7. CONCERTA [Concomitant]
  8. TYSABRI [Suspect]
     Indication: MULTIPLE SCLEROSIS
     Route: 042
     Dates: start: 20080220, end: 20080917
  9. LASIX [Concomitant]
  10. LAMICTAL [Concomitant]
  11. BACLOFEN [Concomitant]
     Dates: start: 20060101

REACTIONS (1)
  - POSTOPERATIVE WOUND INFECTION [None]
